FAERS Safety Report 8293345-9 (Version None)
Quarter: 2012Q2

REPORT INFORMATION
  Report Type: 
  Country: None (occurrence: None)
  Receive Date: 20120417
  Receipt Date: 20111011
  Transmission Date: 20120825
  Serious: No
  Sender: FDA-Public Use
  Company Number: US-ASTRAZENECA-2011SE16750

PATIENT
  Sex: Female

DRUGS (6)
  1. PRILOSEC [Suspect]
     Indication: HIATUS HERNIA
     Route: 048
     Dates: start: 19960101, end: 20030101
  2. ACIPHEX [Concomitant]
  3. PRILOSEC [Suspect]
     Indication: GASTROOESOPHAGEAL REFLUX DISEASE
     Route: 048
     Dates: start: 19960101, end: 20030101
  4. PREVACID [Concomitant]
  5. NEXIUM [Suspect]
     Route: 048
  6. PROTONIX [Concomitant]

REACTIONS (2)
  - GASTROINTESTINAL DISORDER [None]
  - DRUG INEFFECTIVE [None]
